FAERS Safety Report 21927909 (Version 1)
Quarter: 2023Q1

REPORT INFORMATION
  Report Type: Spontaneous
  Country: US (occurrence: US)
  Receive Date: 20230130
  Receipt Date: 20230130
  Transmission Date: 20230418
  Serious: No
  Sender: FDA-Public Use
  Company Number: US-PFIZER INC-202201365265

PATIENT
  Age: 52 Year
  Sex: Female
  Weight: 61.69 kg

DRUGS (3)
  1. KETOROLAC TROMETHAMINE [Suspect]
     Active Substance: KETOROLAC TROMETHAMINE
     Indication: Neck pain
     Dosage: UNK
     Dates: start: 202209
  2. KETOROLAC TROMETHAMINE [Suspect]
     Active Substance: KETOROLAC TROMETHAMINE
     Dosage: 15 MG
     Route: 030
     Dates: start: 20221111
  3. GABAPENTIN [Concomitant]
     Active Substance: GABAPENTIN
     Indication: Nerve injury
     Dosage: 600 MG, 2X/DAY (600 MG TWICE A DAY)

REACTIONS (7)
  - Contusion [Unknown]
  - Pain in extremity [Not Recovered/Not Resolved]
  - Inflammation [Unknown]
  - Hypersensitivity [Unknown]
  - Injection site pain [Unknown]
  - Arthralgia [Unknown]
  - Joint range of motion decreased [Unknown]
